FAERS Safety Report 22148165 (Version 2)
Quarter: 2023Q2

REPORT INFORMATION
  Report Type: Spontaneous
  Country: DE (occurrence: DE)
  Receive Date: 20230328
  Receipt Date: 20230405
  Transmission Date: 20230721
  Serious: Yes (Other)
  Sender: FDA-Public Use
  Company Number: DE-DSJP-DSE-2023-109560

PATIENT
  Age: 88 Year
  Sex: Female
  Weight: 71 kg

DRUGS (2)
  1. EDOXABAN TOSYLATE [Suspect]
     Active Substance: EDOXABAN TOSYLATE
     Indication: Atrial fibrillation
     Dosage: 60 MG, QD
     Route: 048
     Dates: end: 202303
  2. EDOXABAN TOSYLATE [Suspect]
     Active Substance: EDOXABAN TOSYLATE
     Dosage: 30 MG, QD
     Route: 048
     Dates: start: 202303

REACTIONS (7)
  - Renal impairment [Unknown]
  - Metabolic syndrome [Unknown]
  - Glomerular filtration rate decreased [Unknown]
  - Multimorbidity [Unknown]
  - Epistaxis [Unknown]
  - Anticoagulation drug level increased [Unknown]
  - Incorrect dose administered [Recovered/Resolved]

NARRATIVE: CASE EVENT DATE: 20211201
